FAERS Safety Report 6872568-7 (Version None)
Quarter: 2010Q3

REPORT INFORMATION
  Report Type: 
  Country: None (occurrence: None)
  Receive Date: 20100723
  Receipt Date: 20100709
  Transmission Date: 20110219
  Serious: Yes (Hospitalization, Other)
  Sender: FDA-Public Use
  Company Number: JP-ABBOTT-10P-087-0643947-00

PATIENT
  Sex: Female
  Weight: 57.3 kg

DRUGS (10)
  1. HUMIRA [Suspect]
     Indication: RHEUMATOID ARTHRITIS
     Route: 058
     Dates: start: 20090402, end: 20100404
  2. PREDNISOLONE [Suspect]
     Indication: RHEUMATOID ARTHRITIS
     Route: 048
     Dates: start: 20090402, end: 20090513
  3. PREDNISOLONE [Suspect]
     Route: 048
     Dates: start: 20090514, end: 20090708
  4. PREDNISOLONE [Suspect]
     Route: 048
     Dates: start: 20090709, end: 20091014
  5. METHOTREXATE [Suspect]
     Indication: RHEUMATOID ARTHRITIS
     Route: 048
     Dates: start: 20090402, end: 20091125
  6. METHOTREXATE [Suspect]
     Dates: start: 20091126
  7. FOLIC ACID [Concomitant]
     Indication: FOLATE DEFICIENCY
     Route: 048
  8. LOXOPROFEN SODIUM HYDRATE [Concomitant]
     Indication: RHEUMATOID ARTHRITIS
     Route: 048
     Dates: end: 20090415
  9. LOXOPROFEN SODIUM HYDRATE [Concomitant]
     Dates: start: 20090514, end: 20090708
  10. LOXOPROFEN SODIUM HYDRATE [Concomitant]
     Dosage: 1 IN 1 DAY AS NEEDED FOR PAIN
     Dates: start: 20090903, end: 20091014

REACTIONS (2)
  - DISSEMINATED TUBERCULOSIS [None]
  - LIVER DISORDER [None]
